FAERS Safety Report 4310494-8 (Version None)
Quarter: 2004Q1

REPORT INFORMATION
  Report Type: 
  Country: None (occurrence: None)
  Receive Date: 20040303
  Receipt Date: 20040224
  Transmission Date: 20041129
  Serious: Yes (Hospitalization, Other)
  Sender: FDA-Public Use
  Company Number: PHBS2004BE02816

PATIENT
  Age: 32 Year
  Sex: Male

DRUGS (4)
  1. CARBAMAZEPINE [Suspect]
     Indication: COMPLEX PARTIAL SEIZURES
     Dosage: 800 MG/DAY
     Route: 065
  2. LEVETIRACETAM [Suspect]
     Indication: COMPLEX PARTIAL SEIZURES
     Dosage: 1000 MG/DAY
     Route: 065
  3. VALPROATE SODIUM [Concomitant]
     Dosage: 1500 MG/DAY
     Route: 065
  4. CLONAZEPAM [Concomitant]
     Dosage: 2 MG/DAY
     Route: 065

REACTIONS (6)
  - BLOOD CHOLESTEROL INCREASED [None]
  - BLOOD TRIGLYCERIDES INCREASED [None]
  - ENTEROCOLITIS [None]
  - EPILEPSY [None]
  - HAEMATOCHEZIA [None]
  - SOMNOLENCE [None]
